FAERS Safety Report 21604549 (Version 2)
Quarter: 2024Q2

REPORT INFORMATION
  Report Type: Report from Study
  Country: US (occurrence: US)
  Receive Date: 20221116
  Receipt Date: 20240422
  Transmission Date: 20240716
  Serious: No
  Sender: FDA-Public Use
  Company Number: US-ABBVIE-21K-163-4081180-00

PATIENT
  Sex: Male

DRUGS (2)
  1. HUMIRA [Suspect]
     Active Substance: ADALIMUMAB
     Indication: Crohn^s disease
     Dosage: TIME INTERVAL: 1 TOTAL
     Route: 058
     Dates: start: 20210912, end: 20210912
  2. HUMIRA [Suspect]
     Active Substance: ADALIMUMAB

REACTIONS (14)
  - Chills [Recovered/Resolved]
  - Vomiting [Unknown]
  - Frequent bowel movements [Unknown]
  - Fatigue [Unknown]
  - Gastrointestinal sounds abnormal [Unknown]
  - Abdominal pain [Unknown]
  - Joint stiffness [Unknown]
  - Genital rash [Recovering/Resolving]
  - Diarrhoea [Not Recovered/Not Resolved]
  - Fungal infection [Unknown]
  - Pain in extremity [Unknown]
  - Retching [Unknown]
  - Drug ineffective [Unknown]
  - Decreased appetite [Unknown]

NARRATIVE: CASE EVENT DATE: 20220101
